FAERS Safety Report 15244498 (Version 1)
Quarter: 2018Q3

REPORT INFORMATION
  Report Type: Spontaneous
  Country: US (occurrence: US)
  Receive Date: 20180712
  Receipt Date: 20180712
  Transmission Date: 20181010
  Serious: Yes (Disabling)
  Sender: FDA-Public Use
  Company Number: None

PATIENT
  Age: 81 Year
  Sex: Female
  Weight: 49.95 kg

DRUGS (1)
  1. PROLIA [Suspect]
     Active Substance: DENOSUMAB
     Indication: OSTEOPOROSIS
     Dosage: ?          QUANTITY:3 INJECTION(S);?
     Route: 058
     Dates: start: 20170424, end: 20180424

REACTIONS (5)
  - Sensitivity of teeth [None]
  - Toothache [None]
  - Dental caries [None]
  - Dental restoration failure [None]
  - Mastication disorder [None]

NARRATIVE: CASE EVENT DATE: 20180117
